FAERS Safety Report 24456902 (Version 2)
Quarter: 2024Q4

REPORT INFORMATION
  Report Type: Spontaneous
  Country: US (occurrence: US)
  Receive Date: 20241018
  Receipt Date: 20241111
  Transmission Date: 20250114
  Serious: No
  Sender: AMGEN
  Company Number: US-AMGEN-USASP2024204678

PATIENT
  Age: 68 Year
  Sex: Female

DRUGS (6)
  1. PROLIA [Suspect]
     Active Substance: DENOSUMAB
     Indication: Osteoporosis
     Dosage: 60 MILLIGRAM, Q6MO
     Route: 058
     Dates: start: 20240401
  2. PROLIA [Suspect]
     Active Substance: DENOSUMAB
     Indication: Osteoporosis postmenopausal
  3. FOLIC ACID [Concomitant]
     Active Substance: FOLIC ACID
     Indication: Product used for unknown indication
     Route: 058
  4. FOLIC ACID [Concomitant]
     Active Substance: FOLIC ACID
     Route: 058
  5. VITAMIN C [Concomitant]
     Active Substance: ASCORBIC ACID
     Indication: Product used for unknown indication
     Route: 058
  6. VITAMIN C [Concomitant]
     Active Substance: ASCORBIC ACID
     Route: 058

REACTIONS (1)
  - Alopecia [Unknown]

NARRATIVE: CASE EVENT DATE: 20240101
